FAERS Safety Report 4934214-9 (Version None)
Quarter: 2006Q1

REPORT INFORMATION
  Report Type: 
  Country: None (occurrence: None)
  Receive Date: 20060307
  Receipt Date: 20060224
  Transmission Date: 20060701
  Serious: Yes (Hospitalization)
  Sender: FDA-Public Use
  Company Number: 2006SE01185

PATIENT
  Age: 28405 Day
  Sex: Female

DRUGS (2)
  1. FASLODEX [Suspect]
     Indication: BREAST CANCER METASTATIC
     Route: 030
  2. PAMIDRONATE DISODIUM [Concomitant]
     Route: 042

REACTIONS (1)
  - PULMONARY EMBOLISM [None]
